FAERS Safety Report 21644022 (Version 3)
Quarter: 2023Q1

REPORT INFORMATION
  Report Type: Spontaneous
  Country: JP (occurrence: JP)
  Receive Date: 20221125
  Receipt Date: 20230128
  Transmission Date: 20230418
  Serious: Yes (Hospitalization)
  Sender: FDA-Public Use
  Company Number: JP-NBI-J202210028BIPI

PATIENT
  Age: 79 Year
  Sex: Female

DRUGS (2)
  1. OFEV [Suspect]
     Active Substance: NINTEDANIB
     Indication: Interstitial lung disease
     Route: 048
     Dates: start: 20220401, end: 20220430
  2. OFEV [Suspect]
     Active Substance: NINTEDANIB
     Route: 048
     Dates: start: 20220515

REACTIONS (18)
  - Angina pectoris [Recovering/Resolving]
  - Diarrhoea [Recovered/Resolved]
  - Blood pressure increased [Unknown]
  - Pain in extremity [Not Recovered/Not Resolved]
  - Back pain [Not Recovered/Not Resolved]
  - Dyspnoea [Recovering/Resolving]
  - Disease progression [Unknown]
  - Dyspnoea [Not Recovered/Not Resolved]
  - Pulmonary pain [Recovering/Resolving]
  - Dyspnoea [Recovering/Resolving]
  - Abnormal faeces [Not Recovered/Not Resolved]
  - Arthralgia [Recovering/Resolving]
  - Pain in extremity [Recovering/Resolving]
  - Weight decreased [Not Recovered/Not Resolved]
  - Noninfective gingivitis [Not Recovered/Not Resolved]
  - Hypertension [Not Recovered/Not Resolved]
  - Asthma [Unknown]
  - Exercise tolerance decreased [Not Recovered/Not Resolved]

NARRATIVE: CASE EVENT DATE: 20220407
